FAERS Safety Report 4484522-3 (Version None)
Quarter: 2004Q4

REPORT INFORMATION
  Report Type: 
  Country: None (occurrence: None)
  Receive Date: 20041022
  Receipt Date: 20041006
  Transmission Date: 20050328
  Serious: Yes (Death)
  Sender: FDA-Public Use
  Company Number: 2004AL000767

PATIENT
  Age: 51 Year

DRUGS (3)
  1. ALPRAZOLAM [Suspect]
     Dosage: PO
     Route: 048
  2. LISINOPIRL AND HYDROCHLOROTHIAZIDE TABLETS, 10MG/12.5MG, 20 MG/12.5 MG [Suspect]
     Dosage: PO
     Route: 048
  3. NADOLOL [Suspect]

REACTIONS (4)
  - CARDIAC ARREST [None]
  - COMPLETED SUICIDE [None]
  - MULTIPLE DRUG OVERDOSE [None]
  - RESPIRATORY ARREST [None]
